FAERS Safety Report 10677451 (Version 2)
Quarter: 2015Q1

REPORT INFORMATION
  Report Type: Spontaneous
  Country: US (occurrence: US)
  Receive Date: 20141227
  Receipt Date: 20150329
  Transmission Date: 20150720
  Serious: Yes (Hospitalization, Other)
  Sender: FDA-Public Use
  Company Number: US-BAUSCH-SYM-2014-14937

PATIENT
  Age: 70 Year
  Sex: Female

DRUGS (1)
  1. XENAZINE [Suspect]
     Active Substance: TETRABENAZINE
     Indication: MEIGE^S SYNDROME
     Dosage: 1 TABLET, EVERY MORNING
     Route: 048
     Dates: start: 201004

REACTIONS (2)
  - Intentional product use issue [Recovered/Resolved]
  - Depression [Unknown]

NARRATIVE: CASE EVENT DATE: 201311
